FAERS Safety Report 10444021 (Version 1)
Quarter: 2014Q3

REPORT INFORMATION
  Report Type: Spontaneous
  Country: US (occurrence: None)
  Receive Date: 20140909
  Receipt Date: 20140909
  Transmission Date: 20150326
  Serious: Yes (Hospitalization)
  Sender: FDA-Public Use
  Company Number: None

PATIENT
  Age: 63 Year
  Sex: Male
  Weight: 80.3 kg

DRUGS (1)
  1. OXALIPLATIN. [Suspect]
     Active Substance: OXALIPLATIN
     Indication: RECTAL CANCER
     Dosage: 215 MG, OTHER, IV
     Route: 042
     Dates: start: 20131209, end: 20140506

REACTIONS (2)
  - Neuropathy peripheral [None]
  - Influenza [None]

NARRATIVE: CASE EVENT DATE: 20140722
